FAERS Safety Report 9787717 (Version 1)
Quarter: 2013Q4

REPORT INFORMATION
  Report Type: Spontaneous
  Country: US (occurrence: US)
  Receive Date: 20131230
  Receipt Date: 20131230
  Transmission Date: 20140711
  Serious: No
  Sender: FDA-Public Use
  Company Number: US-009507513-1312USA010122

PATIENT
  Sex: Male

DRUGS (4)
  1. VICTRELIS [Suspect]
     Indication: HEPATITIS C
     Dosage: 200 MG, TID
     Route: 048
     Dates: end: 201312
  2. NEOMYCIN [Concomitant]
  3. DILAUDID [Concomitant]
  4. BACITRACIN [Concomitant]

REACTIONS (1)
  - Drug ineffective [Unknown]
